FAERS Safety Report 25862899 (Version 1)
Quarter: 2025Q3

REPORT INFORMATION
  Report Type: Report from Study
  Country: US (occurrence: US)
  Receive Date: 20250930
  Receipt Date: 20250930
  Transmission Date: 20251020
  Serious: Yes (Hospitalization, Other)
  Sender: TAKEDA
  Company Number: US-TAKEDA-2025TUS072558

PATIENT
  Sex: Female

DRUGS (1)
  1. FRUQUINTINIB [Suspect]
     Active Substance: FRUQUINTINIB
     Indication: Colon cancer

REACTIONS (6)
  - Urinary tract infection [Unknown]
  - Abdominal abscess [Unknown]
  - Pelvic fluid collection [Unknown]
  - Lethargy [Unknown]
  - Fatigue [Unknown]
  - Asthenia [Unknown]
